FAERS Safety Report 7282651-2 (Version None)
Quarter: 2011Q1

REPORT INFORMATION
  Report Type: 
  Country: None (occurrence: None)
  Receive Date: 20110127
  Receipt Date: 20101214
  Transmission Date: 20110831
  Serious: No
  Sender: FDA-Public Use
  Company Number: 2010-01048

PATIENT
  Sex: Female

DRUGS (2)
  1. ZICAM COLD REMEDY ZAVORS [Suspect]
     Dosage: Q3-4 HRS X 3-4 DOSES;
     Dates: start: 20101213, end: 20101214
  2. ZICAM COLD REMEDY ORAL MIST [Suspect]
     Dosage: SPORADIC X 2 DAYS;
     Dates: start: 20101213, end: 20101214

REACTIONS (1)
  - AGEUSIA [None]
